FAERS Safety Report 7977507-3 (Version None)
Quarter: 2011Q4

REPORT INFORMATION
  Report Type: 
  Country: None (occurrence: None)
  Receive Date: 20111214
  Receipt Date: 20111118
  Transmission Date: 20120403
  Serious: No
  Sender: FDA-Public Use
  Company Number: US-AMGEN-USASP2011051530

PATIENT
  Age: 78 Year
  Sex: Female
  Weight: 70.295 kg

DRUGS (10)
  1. LIDODERM [Concomitant]
     Dosage: 5 %, QD
     Route: 062
  2. LISINOPRIL [Concomitant]
     Dosage: 10 MG, QD
     Route: 048
  3. ENBREL [Suspect]
     Indication: RHEUMATOID ARTHRITIS
     Dosage: 50 MG, QWK
     Dates: start: 19981201
  4. ZOCOR [Concomitant]
     Dosage: 20 MG, QD
     Route: 048
  5. PREDNISONE TAB [Concomitant]
     Dosage: 5 MG, QD
     Route: 048
  6. PRILOSEC [Concomitant]
     Dosage: 10 MG, PRN
  7. PERCOCET [Concomitant]
     Dosage: 325 MG, PRN
  8. ATIVAN [Concomitant]
     Dosage: 1 MG, QD
     Route: 048
  9. ATENOLOL [Concomitant]
     Dosage: 50 MG, QD
  10. TYLENOL-500 [Concomitant]
     Dosage: 650 MG, PRN

REACTIONS (16)
  - ARTHRALGIA [None]
  - OEDEMA PERIPHERAL [None]
  - DRY EYE [None]
  - HAND DEFORMITY [None]
  - SWELLING [None]
  - DRY MOUTH [None]
  - FATIGUE [None]
  - THERAPEUTIC RESPONSE DECREASED [None]
  - MUSCULOSKELETAL STIFFNESS [None]
  - BACK PAIN [None]
  - LACERATION [None]
  - FALL [None]
  - JOINT SWELLING [None]
  - SYNOVITIS [None]
  - MUSCULAR WEAKNESS [None]
  - PAIN [None]
